FAERS Safety Report 5463897-2 (Version None)
Quarter: 2007Q3

REPORT INFORMATION
  Report Type: 
  Country: None (occurrence: None)
  Receive Date: 20070921
  Receipt Date: 20070918
  Transmission Date: 20080115
  Serious: Yes (Other)
  Sender: FDA-Public Use
  Company Number: GR-SP-2007-03182

PATIENT
  Age: 50 Year
  Sex: Male

DRUGS (1)
  1. BCG  THERAPEUTICS [Suspect]
     Indication: BLADDER CANCER
     Route: 043

REACTIONS (5)
  - ARTHRITIS [None]
  - CONJUNCTIVITIS [None]
  - CYSTITIS [None]
  - PYREXIA [None]
  - REITER'S SYNDROME [None]
